FAERS Safety Report 5133560-6 (Version None)
Quarter: 2006Q4

REPORT INFORMATION
  Report Type: 
  Country: None (occurrence: None)
  Receive Date: 20061018
  Receipt Date: 20061005
  Transmission Date: 20070319
  Serious: Yes (Other)
  Sender: FDA-Public Use
  Company Number: 2006123197

PATIENT
  Sex: Female

DRUGS (5)
  1. GEODON [Suspect]
     Indication: BIPOLAR DISORDER
     Dosage: 40 MG, 1 IN 1 D
  2. LEXAPRO [Concomitant]
  3. TRAZODONE HCL [Concomitant]
  4. XANAX [Concomitant]
  5. KLONOPIN [Concomitant]

REACTIONS (3)
  - DELUSIONAL DISORDER, PERSECUTORY TYPE [None]
  - HALLUCINATION, VISUAL [None]
  - ILLUSION [None]
